FAERS Safety Report 6641349-1 (Version None)
Quarter: 2010Q1

REPORT INFORMATION
  Report Type: 
  Country: None (occurrence: None)
  Receive Date: 20100318
  Receipt Date: 20100305
  Transmission Date: 20100710
  Serious: Yes (Life-Threatening, Hospitalization, Disabling, Other)
  Sender: FDA-Public Use
  Company Number: US-ELI_LILLY_AND_COMPANY-US200911005505

PATIENT
  Sex: Male
  Weight: 77.098 kg

DRUGS (8)
  1. ZYPREXA ZYDIS [Suspect]
     Dosage: 15 MG, 2/D
     Dates: start: 20000101, end: 20060701
  2. ZYPREXA ZYDIS [Suspect]
     Dosage: 5 MG, EACH MORNING
  3. ZYPREXA ZYDIS [Suspect]
     Dosage: 10 MG, EACH EVENING
  4. ZYPREXA ZYDIS [Suspect]
     Dosage: 15 MG, EACH EVENING
  5. ZYPREXA ZYDIS [Suspect]
     Dosage: 2.5 MG, UNK
     Dates: start: 20060716, end: 20060716
  6. ZYPREXA ZYDIS [Suspect]
     Dosage: 10 MG, 2/D
  7. LORAZEPAM [Concomitant]
     Dosage: 1 MG, AS NEEDED
  8. LORAZEPAM [Concomitant]
     Dosage: 2 MG, AS NEEDED

REACTIONS (13)
  - DIABETES MELLITUS [None]
  - DISSEMINATED INTRAVASCULAR COAGULATION [None]
  - EXTRAPYRAMIDAL DISORDER [None]
  - HEPATIC FAILURE [None]
  - MULTI-ORGAN FAILURE [None]
  - NEUROLEPTIC MALIGNANT SYNDROME [None]
  - OVERDOSE [None]
  - RENAL FAILURE [None]
  - RESPIRATORY FAILURE [None]
  - SCHIZOPHRENIA, PARANOID TYPE [None]
  - SINUS TACHYCARDIA [None]
  - UPPER GASTROINTESTINAL HAEMORRHAGE [None]
  - WEIGHT INCREASED [None]
